FAERS Safety Report 14210477 (Version 1)
Quarter: 2017Q4

REPORT INFORMATION
  Report Type: Spontaneous
  Country: EC (occurrence: EC)
  Receive Date: 20171121
  Receipt Date: 20171121
  Transmission Date: 20180321
  Serious: Yes (Death)
  Sender: FDA-Public Use
  Company Number: EC-GLAXOSMITHKLINE-EC2017GSK177304

PATIENT
  Age: 4 Month
  Sex: Female

DRUGS (1)
  1. VENTOLIN [Suspect]
     Active Substance: ALBUTEROL SULFATE
     Indication: BRONCHITIS
     Dosage: UNK
     Route: 055

REACTIONS (5)
  - Overdose [Fatal]
  - Bronchospasm [Fatal]
  - Vomiting [Fatal]
  - Cyanosis [Unknown]
  - Aspiration bronchial [Fatal]

NARRATIVE: CASE EVENT DATE: 20171113
